FAERS Safety Report 5774882-5 (Version None)
Quarter: 2008Q2

REPORT INFORMATION
  Report Type: 
  Country: None (occurrence: None)
  Receive Date: 20080616
  Receipt Date: 20080616
  Transmission Date: 20081010
  Serious: No
  Sender: FDA-Public Use
  Company Number: None

PATIENT
  Sex: Female
  Weight: 63.9 kg

DRUGS (1)
  1. DEFINITY [Suspect]
     Indication: DIAGNOSTIC PROCEDURE
     Dosage: 0.3CC ONCE IV
     Route: 042
     Dates: start: 20080527

REACTIONS (1)
  - BACK PAIN [None]
